FAERS Safety Report 4747262-9 (Version None)
Quarter: 2005Q3

REPORT INFORMATION
  Report Type: 
  Country: None (occurrence: None)
  Receive Date: 20050817
  Receipt Date: 20050808
  Transmission Date: 20060218
  Serious: Yes (Other)
  Sender: FDA-Public Use
  Company Number: GB-ABBOTT-05P-167-0308017-00

PATIENT
  Age: 29 Year
  Sex: Female
  Weight: 163 kg

DRUGS (1)
  1. SIBUTRAMINE [Suspect]
     Indication: OBESITY
     Route: 048
     Dates: start: 20050429

REACTIONS (1)
  - AMENORRHOEA [None]
